FAERS Safety Report 8252819-7 (Version None)
Quarter: 2012Q2

REPORT INFORMATION
  Report Type: 
  Country: None (occurrence: None)
  Receive Date: 20120402
  Receipt Date: 20120224
  Transmission Date: 20120825
  Serious: No
  Sender: FDA-Public Use
  Company Number: US-ABBOTT-12P-163-0909209-00

PATIENT
  Sex: Male
  Weight: 93.524 kg

DRUGS (5)
  1. ANDROGEL [Suspect]
     Dosage: 4 PUMPS PER DAY
     Dates: start: 20120201, end: 20120201
  2. ZYRTEC [Concomitant]
     Indication: SEASONAL ALLERGY
  3. UNKNOWN MEDICATION [Concomitant]
     Indication: BLOOD PRESSURE
  4. ANDROGEL [Suspect]
     Indication: BLOOD TESTOSTERONE DECREASED
     Dosage: 5 PUMPS PER DAY
     Dates: start: 20120201
  5. VIAGRA [Concomitant]
     Indication: PRODUCT USED FOR UNKNOWN INDICATION

REACTIONS (3)
  - DRUG INEFFECTIVE [None]
  - LIBIDO DECREASED [None]
  - AFFECTIVE DISORDER [None]
